FAERS Safety Report 6850238-9 (Version None)
Quarter: 2010Q3

REPORT INFORMATION
  Report Type: 
  Country: None (occurrence: None)
  Receive Date: 20100716
  Receipt Date: 20071012
  Transmission Date: 20110219
  Serious: No
  Sender: FDA-Public Use
  Company Number: US-PFIZER INC-2007087013

PATIENT
  Sex: Male
  Weight: 90.9 kg

DRUGS (8)
  1. CHANTIX [Suspect]
     Indication: SMOKING CESSATION THERAPY
     Route: 048
     Dates: start: 20070901
  2. COFFEE [Suspect]
  3. CLONIDINE [Concomitant]
  4. VALSARTAN [Concomitant]
  5. ABILIFY [Concomitant]
  6. MIRTAZAPINE [Concomitant]
  7. ZOLPIDEM [Concomitant]
     Indication: SLEEP DISORDER
  8. DIAZEPAM [Concomitant]

REACTIONS (1)
  - ABDOMINAL DISCOMFORT [None]
